FAERS Safety Report 25101140 (Version 1)
Quarter: 2025Q1

REPORT INFORMATION
  Report Type: Spontaneous
  Country: US (occurrence: US)
  Receive Date: 20250320
  Receipt Date: 20250320
  Transmission Date: 20250409
  Serious: No
  Sender: CIPLA
  Company Number: US-CIPLA LTD.-2024US11868

PATIENT

DRUGS (3)
  1. TESTOSTERONE [Suspect]
     Active Substance: TESTOSTERONE
     Indication: Hypogonadism
     Route: 065
     Dates: start: 20240812
  2. LYRICA [Concomitant]
     Active Substance: PREGABALIN
     Indication: Arthralgia
     Route: 065
     Dates: start: 202404
  3. LYRICA [Concomitant]
     Active Substance: PREGABALIN
     Indication: Neuralgia

REACTIONS (2)
  - Product dose omission issue [Unknown]
  - Product contamination physical [Unknown]

NARRATIVE: CASE EVENT DATE: 20240101
